FAERS Safety Report 21213382 (Version 2)
Quarter: 2022Q3

REPORT INFORMATION
  Report Type: Report from Study
  Country: US (occurrence: US)
  Receive Date: 20220815
  Receipt Date: 20220927
  Transmission Date: 20221026
  Serious: Yes (Hospitalization, Other)
  Sender: FDA-Public Use
  Company Number: US-ABBVIE-22K-163-4503979-00

PATIENT
  Sex: Female

DRUGS (5)
  1. IMBRUVICA [Suspect]
     Active Substance: IBRUTINIB
     Indication: Chronic lymphocytic leukaemia
     Route: 048
  2. IMBRUVICA [Suspect]
     Active Substance: IBRUTINIB
     Indication: Chronic lymphocytic leukaemia
     Route: 048
     Dates: start: 20220809
  3. Pfizer/BioNTech [Concomitant]
     Indication: COVID-19 immunisation
     Dosage: DOSAGE: 1 ONCE FIRST DOSE
     Route: 030
     Dates: start: 20210125, end: 20210125
  4. Pfizer/BioNTech [Concomitant]
     Indication: COVID-19 immunisation
     Dosage: DOSAGE: 1 ONCE SECOND DOSE
     Route: 030
     Dates: start: 20210215, end: 20210215
  5. Pfizer/BioNTech [Concomitant]
     Indication: COVID-19 immunisation
     Dosage: DOSAGE: 1 ONCE BOOSTER DOSE
     Route: 030
     Dates: start: 20211007, end: 20211007

REACTIONS (6)
  - Spinal compression fracture [Recovered/Resolved]
  - Unevaluable event [Unknown]
  - Pain [Unknown]
  - Urinary tract infection [Unknown]
  - Increased tendency to bruise [Unknown]
  - Irritable bowel syndrome [Unknown]

NARRATIVE: CASE EVENT DATE: 20220101
